FAERS Safety Report 20880232 (Version 1)
Quarter: 2022Q2

REPORT INFORMATION
  Report Type: Report from Study
  Country: NL (occurrence: NL)
  Receive Date: 20220526
  Receipt Date: 20220526
  Transmission Date: 20220721
  Serious: Yes (Hospitalization, Other)
  Sender: FDA-Public Use
  Company Number: NL-BRISTOL-MYERS SQUIBB COMPANY-2022-047798

PATIENT
  Age: 59 Year
  Sex: Male
  Weight: 64 kg

DRUGS (10)
  1. POMALIDOMIDE [Suspect]
     Active Substance: POMALIDOMIDE
     Indication: Plasma cell myeloma
     Dosage: DAYS 1-21; 28 DAY CYCLE
     Route: 048
     Dates: start: 20220421, end: 20220511
  2. TALQUETAMAB [Suspect]
     Active Substance: TALQUETAMAB
     Indication: Plasma cell myeloma
     Route: 058
     Dates: start: 20220322, end: 20220420
  3. DARATUMUMAB [Suspect]
     Active Substance: DARATUMUMAB
     Indication: Plasma cell myeloma
     Route: 048
     Dates: start: 20220321, end: 20220504
  4. VALACYCLOVIR HYDROCHLORIDE [Concomitant]
     Active Substance: VALACYCLOVIR HYDROCHLORIDE
     Indication: Infection prophylaxis
     Route: 048
  5. PAMIDRONIC ACID [Concomitant]
     Active Substance: PAMIDRONIC ACID
     Indication: Prophylaxis
     Route: 042
     Dates: start: 20210624
  6. NANOGAM(IMMUNOGLOBULIN HUMAN NORMAL [Concomitant]
     Indication: Infection prophylaxis
     Route: 042
     Dates: start: 20191231
  7. MOVICOLON(SODIUM BICARBONATE, POTASSIUM CHLORIDE, SODIUM CHLORIDE, MAC [Concomitant]
     Indication: Constipation
     Dosage: 1 SACHET AS REQUIRED
     Route: 048
     Dates: start: 20210707
  8. LEKOVIT CA(COLECALCIFEROL, CALCIUM CARBONATE)(Tablet)(COLECALCIFEROL, [Concomitant]
     Indication: Hypocalcaemia
     Route: 048
     Dates: start: 20220325
  9. PHOSPHATES [SODIUM PHOSPHATE](SODIUM PHOSPHATE)(Liquid)(SODIUM PHOSPHA [Concomitant]
     Indication: Hypophosphataemia
     Dosage: 20 OTHER
     Route: 048
     Dates: start: 20220504
  10. ACETAMINOPHEN [Concomitant]
     Active Substance: ACETAMINOPHEN
     Indication: Pain prophylaxis
     Route: 048
     Dates: start: 20220426

REACTIONS (3)
  - Norovirus infection [Recovered/Resolved]
  - Hypokalaemia [Recovered/Resolved]
  - Acute kidney injury [Recovered/Resolved]

NARRATIVE: CASE EVENT DATE: 20220509
